FAERS Safety Report 23445829 (Version 1)
Quarter: 2024Q1

REPORT INFORMATION
  Report Type: Spontaneous
  Country: US (occurrence: US)
  Receive Date: 20240126
  Receipt Date: 20240126
  Transmission Date: 20240410
  Serious: Yes (Other)
  Sender: FDA-Public Use
  Company Number: US-ROCHE-3493502

PATIENT
  Age: 64 Year
  Sex: Male

DRUGS (1)
  1. CAPECITABINE [Suspect]
     Active Substance: CAPECITABINE
     Indication: Pancreatic carcinoma
     Route: 048
     Dates: start: 202205, end: 202306

REACTIONS (3)
  - Small intestinal obstruction [Unknown]
  - Fatigue [Unknown]
  - Musculoskeletal chest pain [Recovering/Resolving]
